FAERS Safety Report 7236698-2 (Version None)
Quarter: 2011Q1

REPORT INFORMATION
  Report Type: 
  Country: None (occurrence: None)
  Receive Date: 20110120
  Receipt Date: 20110114
  Transmission Date: 20110831
  Serious: Yes (Other)
  Sender: FDA-Public Use
  Company Number: US-PFIZER INC-US-WYE-H14428110

PATIENT
  Sex: Female
  Weight: 106.58 kg

DRUGS (4)
  1. ZESTRIL [Concomitant]
     Dosage: 10 MG, 1X/DAY
  2. OGEN [Concomitant]
     Dosage: 0.625 MG, 1X/DAY
  3. PREMARIN [Suspect]
     Indication: HYSTERECTOMY
     Dosage: UNK
     Route: 065
     Dates: start: 19910101
  4. ESTROPIPATE [Suspect]
     Indication: HYSTERECTOMY
     Dosage: UNK
     Route: 065
     Dates: start: 19910101

REACTIONS (5)
  - JOINT SWELLING [None]
  - FURUNCLE [None]
  - PAIN OF SKIN [None]
  - PAIN IN EXTREMITY [None]
  - OEDEMA PERIPHERAL [None]
